FAERS Safety Report 8574941-8 (Version None)
Quarter: 2012Q3

REPORT INFORMATION
  Report Type: 
  Country: None (occurrence: None)
  Receive Date: 20120807
  Receipt Date: 20120726
  Transmission Date: 20120928
  Serious: Yes (Hospitalization)
  Sender: FDA-Public Use
  Company Number: US-BAYER-2012-009169

PATIENT
  Age: 25 Year
  Sex: Female

DRUGS (8)
  1. YASMIN [Suspect]
  2. PREVACID [Concomitant]
     Dosage: 30 MG, BID
  3. PERCOCET [Concomitant]
     Indication: PAIN
     Dosage: 5/325 MG, 1-2 TABLETS EVERY 4 HOURS AS NEEDED
  4. YAZ [Suspect]
  5. PREVACID [Concomitant]
     Dosage: UNK
     Route: 048
     Dates: start: 20080423
  6. LORTAB [Concomitant]
     Indication: PAIN
     Dosage: 5-500 MG 1-2 EVERY 4-6 HOURS AS NEEDED
     Route: 048
     Dates: start: 20080423
  7. DROSPIRENONE AND ETHINYL ESTRADIOL [Suspect]
  8. PEPCID [Concomitant]
     Dosage: 20 MG, BID
     Route: 048
     Dates: start: 20080305, end: 20080423

REACTIONS (4)
  - BILE DUCT STONE [None]
  - PAIN [None]
  - CHOLECYSTITIS ACUTE [None]
  - INJURY [None]
